FAERS Safety Report 9182761 (Version 1)
Quarter: 2013Q1

REPORT INFORMATION
  Report Type: Spontaneous
  Country: US (occurrence: US)
  Receive Date: 20130322
  Receipt Date: 20130322
  Transmission Date: 20140127
  Serious: No
  Sender: FDA-Public Use
  Company Number: US-BRISTOL-MYERS SQUIBB COMPANY-17119850

PATIENT
  Age: 63 Year
  Sex: Female

DRUGS (1)
  1. ERBITUX [Suspect]
     Indication: LUNG CANCER METASTATIC
     Dosage: RECEIVED FIRST DOSE; 1DF=1 MG/M2
     Route: 042

REACTIONS (1)
  - Headache [Not Recovered/Not Resolved]
